FAERS Safety Report 12713973 (Version 2)
Quarter: 2020Q1

REPORT INFORMATION
  Report Type: Report from Study
  Country: US (occurrence: US)
  Receive Date: 20160905
  Receipt Date: 20200122
  Transmission Date: 20200409
  Serious: Yes (Other)
  Sender: FDA-Public Use
  Company Number: US-AMGEN-USASL2016116003

PATIENT
  Age: 68 Year
  Sex: Male

DRUGS (2)
  1. ASPIRIN. [Concomitant]
     Active Substance: ASPIRIN
     Indication: CARDIAC DISORDER
     Dosage: UNK
  2. ENBREL [Suspect]
     Active Substance: ETANERCEPT
     Indication: RHEUMATOID ARTHRITIS
     Dosage: UNK UNK, ONCE WEEKLY
     Route: 065

REACTIONS (7)
  - Cough [Not Recovered/Not Resolved]
  - Injection site mass [Recovering/Resolving]
  - Ill-defined disorder [Unknown]
  - Increased tendency to bruise [Unknown]
  - Intentional product misuse [Unknown]
  - Pneumonia [Unknown]
  - Injection site bruising [Unknown]

NARRATIVE: CASE EVENT DATE: 202001
